FAERS Safety Report 7499815-5 (Version None)
Quarter: 2011Q2

REPORT INFORMATION
  Report Type: 
  Country: None (occurrence: None)
  Receive Date: 20110517
  Receipt Date: 20110510
  Transmission Date: 20111010
  Serious: Yes (Hospitalization)
  Sender: FDA-Public Use
  Company Number: WAES 1104DEU00074

PATIENT
  Age: 75 Year
  Sex: Male

DRUGS (13)
  1. PREDNISOLONE [Concomitant]
  2. ENOXAPARIN SODIUM [Concomitant]
  3. PANTOPRAZOLE SODIUM [Concomitant]
  4. TRAMADOL HCL [Concomitant]
  5. FERROUS GLYCINE SULFATE [Concomitant]
  6. MESALAMINE [Concomitant]
  7. HEPARIN LOW MOLECULAR WEIGHT [Concomitant]
  8. METOCLOPRAMIDE [Concomitant]
  9. CAP VORINOSTAT [Suspect]
     Indication: SARCOMA METASTATIC
     Dosage: 300 MG/DAILY PO ; 300 MG/DAILY PO ; 400 MG/DAILY PO
     Route: 048
     Dates: start: 20110429, end: 20110508
  10. CAP VORINOSTAT [Suspect]
     Indication: SARCOMA METASTATIC
     Dosage: 300 MG/DAILY PO ; 300 MG/DAILY PO ; 400 MG/DAILY PO
     Route: 048
     Dates: start: 20110329, end: 20110415
  11. CAP VORINOSTAT [Suspect]
     Indication: SARCOMA METASTATIC
     Dosage: 300 MG/DAILY PO ; 300 MG/DAILY PO ; 400 MG/DAILY PO
     Route: 048
     Dates: end: 20110328
  12. AMLODIPINE [Concomitant]
  13. MALTODEXTRIN [Concomitant]

REACTIONS (4)
  - PANCYTOPENIA [None]
  - HAEMORRHAGE [None]
  - SUBILEUS [None]
  - THROMBOCYTOPENIA [None]
